FAERS Safety Report 21342352 (Version 1)
Quarter: 2022Q3

REPORT INFORMATION
  Report Type: Spontaneous
  Country: GB (occurrence: GB)
  Receive Date: 20220916
  Receipt Date: 20220916
  Transmission Date: 20221027
  Serious: Yes (Disabling)
  Sender: FDA-Public Use
  Company Number: GB-MHRA-MED-202209090903471640-SKBFZ

PATIENT
  Sex: Male
  Weight: 76 kg

DRUGS (3)
  1. NAPROXEN [Suspect]
     Active Substance: NAPROXEN
     Indication: Analgesic therapy
     Dosage: 500 MILLIGRAM, QD (DAILY)
     Route: 065
     Dates: start: 202110, end: 202208
  2. NAPROXEN [Suspect]
     Active Substance: NAPROXEN
     Indication: Osteoarthritis
  3. OMEPRAZOLE [Concomitant]
     Active Substance: OMEPRAZOLE
     Indication: Prophylaxis
     Dosage: UNK
     Route: 065
     Dates: start: 202110, end: 202208

REACTIONS (1)
  - Confusional state [Recovering/Resolving]

NARRATIVE: CASE EVENT DATE: 20211101
